FAERS Safety Report 5297732-2 (Version None)
Quarter: 2007Q2

REPORT INFORMATION
  Report Type: 
  Country: None (occurrence: None)
  Receive Date: 20070412
  Receipt Date: 20070412
  Transmission Date: 20071010
  Serious: Yes (Hospitalization)
  Sender: FDA-Public Use
  Company Number: None

PATIENT
  Sex: Female
  Weight: 93.44 kg

DRUGS (2)
  1. CISPLATIN [Suspect]
     Dosage: 100 MG
  2. NAVELBINE [Suspect]
     Dosage: 60 MG

REACTIONS (4)
  - BACTERAEMIA [None]
  - BACTERIA STOOL IDENTIFIED [None]
  - CYSTITIS KLEBSIELLA [None]
  - FEBRILE NEUTROPENIA [None]
